FAERS Safety Report 4837312-3 (Version None)
Quarter: 2005Q4

REPORT INFORMATION
  Report Type: 
  Country: None (occurrence: None)
  Receive Date: 20051122
  Receipt Date: 20051101
  Transmission Date: 20060501
  Serious: Yes (Other)
  Sender: FDA-Public Use
  Company Number: T05-SWI-01891-01

PATIENT
  Age: 51 Year
  Sex: Male

DRUGS (6)
  1. CIPRALEX (ESCITALOPRAM) [Suspect]
     Indication: ANXIETY
     Dosage: 30 MG QD PO
     Route: 048
     Dates: start: 20040101, end: 20050425
  2. CIPRALEX (ESCITALOPRAM) [Suspect]
     Indication: ANXIETY
     Dosage: 10 MG QD PO
     Route: 048
     Dates: start: 20050426
  3. ZYPREXA [Suspect]
     Indication: PSYCHOTIC DISORDER
     Dosage: 5 MG QD PO
     Route: 048
     Dates: start: 20050421
  4. KEMADRIN [Suspect]
     Indication: NERVOUS SYSTEM DISORDER
     Dosage: 15 MG QD PO
     Route: 048
     Dates: start: 20050101, end: 20050425
  5. KENADRIN (PROCYCLIDINE HYDROCHLORIDE) [Suspect]
     Indication: NERVOUS SYSTEM DISORDER
     Dosage: 5 MG QD PO
     Route: 048
     Dates: start: 20050426
  6. DORMICUM (NITRAZEPAM) [Concomitant]

REACTIONS (8)
  - ANXIETY [None]
  - DIZZINESS [None]
  - DRUG DEPENDENCE [None]
  - EPILEPSY [None]
  - LOSS OF CONSCIOUSNESS [None]
  - MYOCLONUS [None]
  - OVERDOSE [None]
  - SOMATOFORM DISORDER [None]
